FAERS Safety Report 5605361-3 (Version None)
Quarter: 2008Q1

REPORT INFORMATION
  Report Type: 
  Country: None (occurrence: None)
  Receive Date: 20080123
  Receipt Date: 20080116
  Transmission Date: 20080703
  Serious: Yes (Hospitalization)
  Sender: FDA-Public Use
  Company Number: TPA2008A00081

PATIENT
  Age: 87 Year
  Sex: Male
  Weight: 56.6996 kg

DRUGS (9)
  1. ROZEREM [Suspect]
     Indication: MIDDLE INSOMNIA
     Dosage: 8 MG, HS, PER ORAL
     Route: 048
     Dates: start: 20071001
  2. TOPROL-XL [Concomitant]
  3. PLAVIX [Concomitant]
  4. ASPIRIN [Concomitant]
  5. CITRUCEL (METHYLCELLULOSE) [Concomitant]
  6. CALCIUM (CALCIUM) [Concomitant]
  7. FLOMAX [Concomitant]
  8. FOSOMAX (ALANDRONATE SODIUM) [Concomitant]
  9. AVODART [Concomitant]

REACTIONS (3)
  - CEREBROVASCULAR ACCIDENT [None]
  - INFARCTION [None]
  - MIDDLE INSOMNIA [None]
